FAERS Safety Report 6735843-2 (Version None)
Quarter: 2010Q2

REPORT INFORMATION
  Report Type: 
  Country: None (occurrence: None)
  Receive Date: 20100521
  Receipt Date: 20100513
  Transmission Date: 20101027
  Serious: Yes (Hospitalization, Disabling)
  Sender: FDA-Public Use
  Company Number: A0834812A

PATIENT
  Age: 49 Year
  Sex: Male

DRUGS (1)
  1. AVANDIA [Suspect]
     Indication: DIABETES MELLITUS
     Dosage: 8MG PER DAY
     Route: 048
     Dates: start: 20000101, end: 20010101

REACTIONS (4)
  - CARDIAC DISORDER [None]
  - CAROTID ARTERY DISEASE [None]
  - STENT PLACEMENT [None]
  - VASCULAR GRAFT [None]
